FAERS Safety Report 5744563-2 (Version None)
Quarter: 2008Q2

REPORT INFORMATION
  Report Type: 
  Country: None (occurrence: None)
  Receive Date: 20080516
  Receipt Date: 20080501
  Transmission Date: 20081010
  Serious: Yes (Hospitalization)
  Sender: FDA-Public Use
  Company Number: 2008S1005980

PATIENT
  Age: 75 Year
  Sex: Male

DRUGS (2)
  1. METHOTREXATE TABLETS, UPS (2.5 MG) [Suspect]
     Indication: RHEUMATOID ARTHRITIS
     Dosage: 20 MG; WEEKLY; ORAL
     Route: 048
     Dates: start: 19980201, end: 20080301
  2. LEFLUNOMIDE [Suspect]
     Indication: RHEUMATOID ARTHRITIS

REACTIONS (6)
  - BLOOD ELECTROLYTES ABNORMAL [None]
  - BLOOD IRON DECREASED [None]
  - FALL [None]
  - HIP FRACTURE [None]
  - PANCYTOPENIA [None]
  - PYREXIA [None]
